FAERS Safety Report 10393632 (Version 2)
Quarter: 2014Q1

REPORT INFORMATION
  Report Type: Spontaneous
  Country: US (occurrence: None)
  Receive Date: 20120913
  Receipt Date: 20131226
  Transmission Date: 20141002
  Serious: Yes (Other)
  Sender: FDA-Public Use
  Company Number: PHHY2010US38646

PATIENT
  Age: 46 Year
  Sex: Female

DRUGS (1)
  1. EXTAVIA [Suspect]
     Indication: MULTIPLE SCLEROSIS
     Dosage: 0.3 MG/ML VIALS (1X15), DAILY, SUBCUTANEOUS
     Route: 058
     Dates: start: 20100604

REACTIONS (6)
  - Depression [None]
  - Throat irritation [None]
  - Discomfort [None]
  - Fatigue [None]
  - Arthralgia [None]
  - Pain [None]
